FAERS Safety Report 11498069 (Version 3)
Quarter: 2015Q4

REPORT INFORMATION
  Report Type: Other
  Country: IT (occurrence: IT)
  Receive Date: 20150911
  Receipt Date: 20151002
  Transmission Date: 20160304
  Serious: Yes (Other)
  Sender: FDA-Public Use
  Company Number: IT-MYLANLABS-2015M1030015

PATIENT

DRUGS (2)
  1. PANTOPRAZOLO MYLAN 20MG GASTRORESISTANT TABLET [Suspect]
     Active Substance: PANTOPRAZOLE SODIUM
     Indication: PRODUCT USED FOR UNKNOWN INDICATION
     Dosage: 20 MG, QD
     Route: 048
     Dates: start: 20120206
  2. ESIDREX [Suspect]
     Active Substance: HYDROCHLOROTHIAZIDE
     Indication: ESSENTIAL HYPERTENSION
     Dosage: 25 MG, QD
     Route: 048
     Dates: start: 20130522, end: 20131106

REACTIONS (4)
  - Disorientation [Recovered/Resolved]
  - Hypokalaemia [Unknown]
  - Hyponatraemia [Recovered/Resolved]
  - Sopor [Recovered/Resolved]

NARRATIVE: CASE EVENT DATE: 20131106
